FAERS Safety Report 7214228-9 (Version None)
Quarter: 2011Q1

REPORT INFORMATION
  Report Type: 
  Country: None (occurrence: None)
  Receive Date: 20110107
  Receipt Date: 20101227
  Transmission Date: 20110831
  Serious: Yes (Life-Threatening, Other)
  Sender: FDA-Public Use
  Company Number: FR-KINGPHARMUSA00001-K201001540

PATIENT
  Age: 66 Year
  Sex: Female

DRUGS (2)
  1. ALTACE [Suspect]
     Indication: CARDIAC FAILURE
     Dosage: 10 MG, QD
     Route: 048
     Dates: start: 20101201, end: 20101201
  2. HYDROCHLOROTHIAZIDE [Suspect]
     Indication: CARDIAC FAILURE
     Dosage: 12.5 MG, QD
     Route: 048
     Dates: start: 20101201, end: 20101201

REACTIONS (3)
  - HEPATIC PAIN [None]
  - HYPOAESTHESIA [None]
  - FACE OEDEMA [None]
